FAERS Safety Report 5030955-6 (Version None)
Quarter: 2006Q2

REPORT INFORMATION
  Report Type: 
  Country: None (occurrence: None)
  Receive Date: 20060615
  Receipt Date: 20060606
  Transmission Date: 20061013
  Serious: Yes (Other)
  Sender: FDA-Public Use
  Company Number: 2006029219

PATIENT
  Age: 75 Year
  Sex: Male

DRUGS (5)
  1. VFEND [Suspect]
     Indication: BRONCHOPULMONARY ASPERGILLOSIS
     Dosage: SEE IMAGE
     Route: 048
     Dates: start: 20060217, end: 20060218
  2. VFEND [Suspect]
     Indication: BRONCHOPULMONARY ASPERGILLOSIS
     Dosage: SEE IMAGE
     Route: 048
     Dates: start: 20060218, end: 20060220
  3. PREDNISOLONE [Concomitant]
  4. PURSENNID (SENNA LEAF) [Concomitant]
  5. CARBENIN (BETAMIPRON, PANIPENEM) [Concomitant]

REACTIONS (9)
  - DELIRIUM [None]
  - DRUG EFFECT DECREASED [None]
  - GENERAL PHYSICAL HEALTH DETERIORATION [None]
  - HALLUCINATION, AUDITORY [None]
  - HALLUCINATION, VISUAL [None]
  - HEART RATE INCREASED [None]
  - PALPITATIONS [None]
  - PNEUMONIA [None]
  - STUPOR [None]
